FAERS Safety Report 14110607 (Version 1)
Quarter: 2017Q4

REPORT INFORMATION
  Report Type: Spontaneous
  Country: US (occurrence: None)
  Receive Date: 20171019
  Receipt Date: 20171019
  Transmission Date: 20180321
  Serious: Yes (Hospitalization)
  Sender: FDA-Public Use
  Company Number: None

PATIENT
  Age: 68 Year
  Sex: Female

DRUGS (6)
  1. HYDROMORPHON [Concomitant]
     Active Substance: HYDROMORPHONE
  2. IBRANCE [Suspect]
     Active Substance: PALBOCICLIB
     Indication: NEOPLASM MALIGNANT
     Dosage: 125 MG QD FOR 21 DAYS AND 7 PO
     Route: 048
  3. MORPHINE [Concomitant]
     Active Substance: MORPHINE
  4. VITAMIN D [Concomitant]
     Active Substance: CHOLECALCIFEROL
  5. LISINOPRIL. [Concomitant]
     Active Substance: LISINOPRIL
  6. COLLAGENASE SANTYL [Concomitant]
     Active Substance: COLLAGENASE CLOSTRIDIUM HISTOLYTICUM

REACTIONS (5)
  - Decubitus ulcer [None]
  - Hypertension [None]
  - Wound [None]
  - Infection [None]
  - Pain [None]

NARRATIVE: CASE EVENT DATE: 20170926
